FAERS Safety Report 4910512-X (Version None)
Quarter: 2006Q1

REPORT INFORMATION
  Report Type: 
  Country: None (occurrence: None)
  Receive Date: 20060209
  Receipt Date: 20060125
  Transmission Date: 20060701
  Serious: Yes (Hospitalization)
  Sender: FDA-Public Use
  Company Number: 2006000209

PATIENT
  Age: 82 Year
  Sex: Female

DRUGS (1)
  1. TARCEVA [Suspect]
     Indication: LUNG NEOPLASM MALIGNANT
     Dosage: 150 MG (QD), ORAL
     Route: 048
     Dates: start: 20051021, end: 20051215

REACTIONS (4)
  - LEUKOCYTOCLASTIC VASCULITIS [None]
  - RASH PUSTULAR [None]
  - TOXIC SKIN ERUPTION [None]
  - VASCULITIS [None]
